FAERS Safety Report 19632780 (Version 2)
Quarter: 2021Q3

REPORT INFORMATION
  Report Type: Report from Study
  Country: DE (occurrence: DE)
  Receive Date: 20210730
  Receipt Date: 20210921
  Transmission Date: 20211014
  Serious: Yes (Hospitalization)
  Sender: FDA-Public Use
  Company Number: DE-BRISTOL-MYERS SQUIBB COMPANY-BMS-2021-072209

PATIENT
  Age: 52 Year
  Sex: Female
  Weight: 63 kg

DRUGS (6)
  1. CENTROVISION MAKULA OMEGA 3 [Concomitant]
     Indication: PRODUCT USED FOR UNKNOWN INDICATION
     Dosage: 1 DOSAGE FORM = 2 UNIT NOS
     Route: 048
     Dates: start: 202001
  2. L?THYROXIN [LEVOTHYROXINE] [Concomitant]
     Active Substance: LEVOTHYROXINE SODIUM
     Indication: PRODUCT USED FOR UNKNOWN INDICATION
     Dosage: 150 MICROGRAM
     Route: 048
     Dates: start: 20210618
  3. CLEXANE [Concomitant]
     Active Substance: ENOXAPARIN SODIUM
     Indication: PROPHYLAXIS
     Dosage: 1 DOSAGE FORM = 0.4 UNIT NOS
     Route: 058
     Dates: start: 20210706, end: 20210709
  4. BIO KURKUMA [Concomitant]
     Indication: PROPHYLAXIS
     Dosage: 1 DOSAGE FORM = 2 UNIT NOS
     Route: 048
     Dates: start: 201908
  5. NIVOLUMAB [Suspect]
     Active Substance: NIVOLUMAB
     Indication: MALIGNANT MELANOMA
     Dosage: 148 MILLILITER
     Route: 042
     Dates: start: 20201105
  6. FRESUBIN [CARBOHYDRATES NOS;FATTY ACIDS NOS;MINERALS NOS;PROTEINS NOS; [Concomitant]
     Active Substance: CARBOHYDRATES\FATTY ACIDS\MINERALS\PROTEIN\VITAMINS
     Indication: PROTEIN DEFICIENCY
     Dosage: 1 DOSAGE FORM = 2 UNIT NOS
     Route: 048
     Dates: start: 20210706

REACTIONS (1)
  - Protein deficiency [Recovered/Resolved]

NARRATIVE: CASE EVENT DATE: 20210721
